FAERS Safety Report 8469848-0 (Version None)
Quarter: 2012Q2

REPORT INFORMATION
  Report Type: 
  Country: None (occurrence: None)
  Receive Date: 20120627
  Receipt Date: 20120622
  Transmission Date: 20120825
  Serious: Yes (Hospitalization)
  Sender: FDA-Public Use
  Company Number: PHHY2012IT053647

PATIENT
  Sex: Male

DRUGS (6)
  1. PURINETHOL [Concomitant]
     Dosage: 50 MG, UNK
  2. MYCOSTATIN [Concomitant]
  3. BACTRIM [Concomitant]
  4. LEUCOVORIN CALCIUM [Concomitant]
  5. ZOFRAN [Concomitant]
  6. METHOTREXATE [Suspect]
     Indication: ACUTE LYMPHOCYTIC LEUKAEMIA
     Dosage: 4350 MG, UNK
     Route: 042
     Dates: start: 20120329

REACTIONS (3)
  - ASTHENIA [None]
  - HEADACHE [None]
  - ISCHAEMIA [None]
